FAERS Safety Report 17192519 (Version 1)
Quarter: 2019Q4

REPORT INFORMATION
  Report Type: Spontaneous
  Country: IL (occurrence: IL)
  Receive Date: 20191223
  Receipt Date: 20191223
  Transmission Date: 20200122
  Serious: Yes (Death, Disabling)
  Sender: FDA-Public Use
  Company Number: IL-ABBVIE-19K-082-3207401-00

PATIENT
  Age: 18 Year
  Sex: Female

DRUGS (1)
  1. VENETOCLAX. [Suspect]
     Active Substance: VENETOCLAX
     Indication: ACUTE MYELOID LEUKAEMIA RECURRENT
     Route: 048
     Dates: start: 20190912, end: 20191218

REACTIONS (2)
  - Acute myeloid leukaemia [Fatal]
  - Pancytopenia [Unknown]

NARRATIVE: CASE EVENT DATE: 20191009
